FAERS Safety Report 5805448-6 (Version None)
Quarter: 2008Q3

REPORT INFORMATION
  Report Type: 
  Country: None (occurrence: None)
  Receive Date: 20080708
  Receipt Date: 20080624
  Transmission Date: 20090109
  Serious: Yes (Other)
  Sender: FDA-Public Use
  Company Number: SPV1-2008-01279

PATIENT
  Age: 5 Year
  Sex: Male
  Weight: 20.4 kg

DRUGS (3)
  1. CARBATROL [Suspect]
     Indication: CONVULSION
     Dosage: 100 MG, 6 CAPSULES DAILY, ORAL, 100 MG, 8 CAPSULES DAILY, ORAL, 100 MG, 6 CAPSULES DAILY, ORAL
     Route: 048
     Dates: start: 20071101, end: 20080101
  2. CARBATROL [Suspect]
     Indication: CONVULSION
     Dosage: 100 MG, 6 CAPSULES DAILY, ORAL, 100 MG, 8 CAPSULES DAILY, ORAL, 100 MG, 6 CAPSULES DAILY, ORAL
     Route: 048
     Dates: start: 20080101, end: 20080501
  3. CARBATROL [Suspect]
     Indication: CONVULSION
     Dosage: 100 MG, 6 CAPSULES DAILY, ORAL, 100 MG, 8 CAPSULES DAILY, ORAL, 100 MG, 6 CAPSULES DAILY, ORAL
     Route: 048
     Dates: start: 20080501

REACTIONS (5)
  - ANOREXIA [None]
  - ASTHENIA [None]
  - CONVULSION [None]
  - PHARMACEUTICAL PRODUCT COMPLAINT [None]
  - SOMNOLENCE [None]
